FAERS Safety Report 8639838 (Version 2)
Quarter: 2013Q3

REPORT INFORMATION
  Report Type: Spontaneous
  Country: PL (occurrence: None)
  Receive Date: 20120614
  Receipt Date: 20130705
  Transmission Date: 20140515
  Serious: Yes (Hospitalization, Other)
  Sender: FDA-Public Use
  Company Number: PL-022773

PATIENT
  Age: 58 Year
  Sex: Male

DRUGS (9)
  1. LEUKERAN [Suspect]
     Indication: CHRONIC LYMPHOCYTIC LEUKAEMIA
     Dosage: 10MG/M2 DAYS 1-7 EVERY 28 DAYS (10 MG/M2) ORAL
     Route: 048
     Dates: start: 20110331, end: 20110504
  2. POTASSIUM CHLORIDE [Concomitant]
  3. HYGROTON [Concomitant]
  4. SPIRONOL [Concomitant]
  5. SULFAMETHOXAZOLE AND TRIMETHOPRIM [Concomitant]
  6. ALLOPURINOL [Concomitant]
  7. POLPRAZOL [Concomitant]
  8. METFORMIN HYDROCHLORIDE [Concomitant]
  9. ELECTROLYTE FLUIDS [Concomitant]

REACTIONS (9)
  - Fatigue [None]
  - Lymphadenopathy [None]
  - Vertigo [None]
  - Haematotoxicity [None]
  - Thrombocytopenia [None]
  - Pyrexia [None]
  - Splenomegaly [None]
  - Haemolytic anaemia [None]
  - White blood cell count increased [None]
